FAERS Safety Report 5020379-X (Version None)
Quarter: 2006Q2

REPORT INFORMATION
  Report Type: 
  Country: None (occurrence: None)
  Receive Date: 20060601
  Receipt Date: 20060515
  Transmission Date: 20061013
  Serious: Yes (Hospitalization)
  Sender: FDA-Public Use
  Company Number: PHRM2006FR01571

PATIENT
  Age: 27 Year
  Sex: Male
  Weight: 26 kg

DRUGS (4)
  1. LIORESAL [Suspect]
     Indication: CEREBRAL PALSY
     Dosage: SEE IMAGE
     Route: 037
     Dates: start: 20050916
  2. LIORESAL [Suspect]
     Indication: CEREBRAL PALSY
     Dosage: SEE IMAGE
     Route: 037
     Dates: start: 20060210
  3. LIORESAL [Suspect]
     Indication: CEREBRAL PALSY
     Dosage: SEE IMAGE
     Route: 037
     Dates: start: 20060427
  4. VALIUM [Concomitant]

REACTIONS (5)
  - BLOOD CREATINE PHOSPHOKINASE INCREASED [None]
  - BLOOD CREATININE INCREASED [None]
  - CONDITION AGGRAVATED [None]
  - MUSCLE SPASTICITY [None]
  - MYOGLOBINURIA [None]
